FAERS Safety Report 6150333-6 (Version None)
Quarter: 2009Q2

REPORT INFORMATION
  Report Type: 
  Country: None (occurrence: None)
  Receive Date: 20090407
  Receipt Date: 20090324
  Transmission Date: 20091009
  Serious: Yes (Death)
  Sender: FDA-Public Use
  Company Number: B0567763A

PATIENT
  Sex: 0

DRUGS (4)
  1. AMOXICILLIN AND CLAVULANATE POTASSIUM [Suspect]
  2. ERYTHROMYCIN [Suspect]
  3. CLARITHROMYCIN [Suspect]
  4. CEFTRIAXONE [Suspect]

REACTIONS (1)
  - CLOSTRIDIAL INFECTION [None]
